FAERS Safety Report 7358343-8 (Version None)
Quarter: 2011Q1

REPORT INFORMATION
  Report Type: 
  Country: None (occurrence: None)
  Receive Date: 20110317
  Receipt Date: 20110304
  Transmission Date: 20110831
  Serious: Yes (Other)
  Sender: FDA-Public Use
  Company Number: PHHY2010CA65337

PATIENT
  Sex: Female

DRUGS (3)
  1. SANDOSTATIN LAR [Suspect]
     Dosage: 20 MG, QMO
     Route: 030
     Dates: end: 20110111
  2. SANDOSTATIN LAR [Suspect]
     Dosage: 30 MG, EVERY FOUR WEEKS
     Route: 030
     Dates: start: 20100623
  3. SANDOSTATIN LAR [Suspect]
     Indication: HEPATIC CANCER METASTATIC
     Dosage: 20 MG, EVERY 4 WEEKS
     Route: 030
     Dates: start: 20100623

REACTIONS (11)
  - HYPOGLYCAEMIA [None]
  - ASTHENIA [None]
  - DRUG INEFFECTIVE [None]
  - HEART RATE INCREASED [None]
  - COUGH [None]
  - NASAL CONGESTION [None]
  - DIZZINESS [None]
  - DIABETES MELLITUS [None]
  - NAUSEA [None]
  - VOMITING [None]
  - NASOPHARYNGITIS [None]
